FAERS Safety Report 18664933 (Version 1)
Quarter: 2020Q4

REPORT INFORMATION
  Report Type: Spontaneous
  Country: US (occurrence: US)
  Receive Date: 20201225
  Receipt Date: 20201225
  Transmission Date: 20210114
  Serious: No
  Sender: FDA-Public Use
  Company Number: US-TAKEDA-2020TUS058397

PATIENT
  Age: 39 Year
  Sex: Male

DRUGS (1)
  1. TAKHZYRO [Suspect]
     Active Substance: LANADELUMAB-FLYO
     Indication: HEREDITARY ANGIOEDEMA
     Dosage: 2 MILLILITER, Q2WEEKS
     Route: 058
     Dates: start: 20200921

REACTIONS (1)
  - Endoscopy [Unknown]

NARRATIVE: CASE EVENT DATE: 20201210
